FAERS Safety Report 17873203 (Version 1)
Quarter: 2020Q2

REPORT INFORMATION
  Report Type: Spontaneous
  Country: US (occurrence: US)
  Receive Date: 20200608
  Receipt Date: 20200608
  Transmission Date: 20200714
  Serious: No
  Sender: FDA-Public Use
  Company Number: US-OSMOTICA_PHARMACEUTICAL_US_LLC-POI0573202000278

PATIENT
  Age: 80 Year
  Sex: Male

DRUGS (4)
  1. OSMOLEX ER [Suspect]
     Active Substance: AMANTADINE
     Dates: start: 202003
  2. CARBIDOPA LEVODOPA [Concomitant]
     Active Substance: CARBIDOPA\LEVODOPA
     Indication: PARKINSON^S DISEASE
     Dosage: 25 250 MG TABLETS (2.5 TABLETS PO,  TID, DURING THE DAY), 1 TABLET IN THE EVENING
  3. OSMOLEX ER [Suspect]
     Active Substance: AMANTADINE
     Indication: PARKINSON^S DISEASE
     Dates: start: 202002, end: 202003
  4. OSMOLEX ER [Suspect]
     Active Substance: AMANTADINE
     Dates: start: 202003, end: 202003

REACTIONS (2)
  - Feeling abnormal [Recovered/Resolved]
  - Dyskinesia [Recovered/Resolved]

NARRATIVE: CASE EVENT DATE: 202003
